FAERS Safety Report 10145011 (Version 2)
Quarter: 2014Q2

REPORT INFORMATION
  Report Type: Spontaneous
  Country: DE (occurrence: DE)
  Receive Date: 20140501
  Receipt Date: 20140509
  Transmission Date: 20141212
  Serious: Yes (Other)
  Sender: FDA-Public Use
  Company Number: GXKR2014DE001717

PATIENT
  Age: 71 Year
  Sex: Male

DRUGS (1)
  1. MIRTAZAPIN HEXAL [Suspect]
     Dosage: 30 MG, QD
     Route: 048

REACTIONS (6)
  - Pharyngeal oedema [Recovered/Resolved]
  - Throat irritation [Recovered/Resolved]
  - Dizziness [Recovered/Resolved]
  - Malaise [Recovered/Resolved]
  - Sleep disorder [Recovered/Resolved]
  - Product quality issue [Unknown]
